FAERS Safety Report 23776783 (Version 3)
Quarter: 2024Q2

REPORT INFORMATION
  Report Type: Spontaneous
  Country: US (occurrence: None)
  Receive Date: 20240424
  Receipt Date: 20240515
  Transmission Date: 20240716
  Serious: Yes (Hospitalization, Disabling, Other)
  Sender: FDA-Public Use
  Company Number: 2024A091439

PATIENT
  Sex: Female

DRUGS (2)
  1. BYETTA [Suspect]
     Active Substance: EXENATIDE
  2. BYDUREON BCISE [Suspect]
     Active Substance: EXENATIDE

REACTIONS (12)
  - Hospitalisation [Unknown]
  - Diarrhoea [Unknown]
  - Dehydration [Unknown]
  - Disability [Unknown]
  - Administration site injury [Unknown]
  - Constipation [Unknown]
  - Malaise [Unknown]
  - Abdominal discomfort [Unknown]
  - Weight increased [Unknown]
  - Needle issue [Unknown]
  - Incorrect dose administered [Unknown]
  - Product use issue [Unknown]
